FAERS Safety Report 9107875 (Version 3)
Quarter: 2013Q2

REPORT INFORMATION
  Report Type: Spontaneous
  Country: US (occurrence: US)
  Receive Date: 20130221
  Receipt Date: 20130523
  Transmission Date: 20140414
  Serious: Yes (Other)
  Sender: FDA-Public Use
  Company Number: US-PFIZER INC-2013062008

PATIENT
  Age: 56 Year
  Sex: Female
  Weight: 66.6 kg

DRUGS (24)
  1. XALKORI [Suspect]
     Indication: NON-SMALL CELL LUNG CANCER
     Dosage: 250 MG, 2X/DAY
     Route: 048
     Dates: start: 20130117
  2. HYDROCODONE [Concomitant]
     Dosage: UNK
  3. TYLENOL EXTRA-STRENGTH [Concomitant]
     Indication: PAIN
     Dosage: (500 MG TO 1,000 MG ORAL AS NEEDED FOR PAIN OR FEVER ONCE A DAY)
     Route: 048
  4. TYLENOL EXTRA-STRENGTH [Concomitant]
     Indication: PYREXIA
  5. CELEXA [Concomitant]
     Dosage: 20 MG, 1X/DAY
     Route: 048
  6. LOVENOX [Concomitant]
     Dosage: 70 MG, (80 MG/0.8 ML INJECTABLE SOLUTION, 70 MG SUBCUTANEOUS EVERY 12 HOURS)
     Route: 058
  7. IMODIUM A-D [Concomitant]
     Indication: DIARRHOEA
     Dosage: 4 MG, AS NEEDED (AFTER 1ST EPISODE.THEN TAKE 1 TAB AFTER EACH SUBSEQUENT DIARRHEA UPTO 8 TABS/DAY)
     Route: 048
  8. ATIVAN [Concomitant]
     Indication: ANXIETY
     Dosage: (0.5 MG TO 1 MG ORAL AS NEEDED FOR ANXIETY, NAUSEA, OR SLEEPLESSNESS EVERY 4 TO 6 HOURS)
     Route: 048
  9. ATIVAN [Concomitant]
     Indication: NAUSEA
  10. ATIVAN [Concomitant]
     Indication: INSOMNIA
  11. OMEPRAZOLE [Concomitant]
     Dosage: 20 MG, 2X/DAY (BEFORE MEALS)
     Route: 048
  12. ZOFRAN [Concomitant]
     Indication: NAUSEA
     Dosage: 8 MG, (8MG ORAL EVERY 8 HOURS AS NEEDED FOR NAUSEA)
     Route: 048
  13. OXYCODONE [Concomitant]
     Indication: PAIN
     Dosage: 5 MG, (5MG ORAL EVERY 4 HOURS AS NEEDED FOR PAIN)
     Route: 048
  14. COMPAZINE [Concomitant]
     Indication: NAUSEA
     Dosage: 10 MG, (10 MG ORAL EVERY 6 HOURS AS NEEDED FOR NAUSEA)
     Route: 048
  15. CITALOPRAM [Concomitant]
     Dosage: 20 MG, 1X/DAY
  16. LORAZEPAM [Concomitant]
     Dosage: 0.5 MG, AS NEEDED
     Route: 048
  17. WARFARIN [Concomitant]
     Dosage: 7.5 MG, (5 DAYS OUT OF THE WEEK)
  18. WARFARIN [Concomitant]
     Dosage: 10 MG, (2 DAYS OUT OF THE WEEK)
  19. ONDANSETRON [Concomitant]
     Dosage: 1 DF, AS NEEDED
  20. PROCHLORPERAZINE [Concomitant]
     Dosage: 1 DF, AS NEEDED
  21. DEXAMETHASONE [Concomitant]
     Dosage: 1 DF, (WITH CHEMOTHERAPY)
  22. HYDROCODONE W/ACETAMINOPHEN [Concomitant]
     Dosage: 1 DF, (5/500 EVERY 4 HOURS AS NEEDED)
  23. IMODIUM [Concomitant]
     Dosage: 1 DF, AS NEEDED
  24. ACETAMINOPHEN [Concomitant]
     Dosage: 1 DF, AS NEEDED

REACTIONS (28)
  - Electrocardiogram QT prolonged [Recovered/Resolved]
  - Pericardial effusion [Unknown]
  - Fungal oesophagitis [Recovered/Resolved]
  - Hypokalaemia [Unknown]
  - Blood calcium decreased [Unknown]
  - Blood lactate dehydrogenase increased [Unknown]
  - Aspartate aminotransferase abnormal [Unknown]
  - Protein total decreased [Unknown]
  - Blood albumin decreased [Unknown]
  - White blood cell count decreased [Unknown]
  - Red blood cell count decreased [Unknown]
  - Haemoglobin decreased [Unknown]
  - Haematocrit decreased [Unknown]
  - Mean cell volume increased [Unknown]
  - Red cell distribution width increased [Unknown]
  - Neutrophil count decreased [Unknown]
  - Influenza like illness [Unknown]
  - Pyrexia [Unknown]
  - Chills [Unknown]
  - Weight decreased [Unknown]
  - Diarrhoea [Unknown]
  - Fatigue [Unknown]
  - Decreased appetite [Unknown]
  - Pleural effusion [Unknown]
  - Hypomagnesaemia [Unknown]
  - Mucosal inflammation [Unknown]
  - Bradycardia [Unknown]
  - Sinus arrhythmia [Unknown]
